FAERS Safety Report 11942459 (Version 1)
Quarter: 2016Q1

REPORT INFORMATION
  Report Type: Spontaneous
  Country: US (occurrence: US)
  Receive Date: 20160125
  Receipt Date: 20160125
  Transmission Date: 20160526
  Serious: No
  Sender: FDA-Public Use
  Company Number: US-UNITED THERAPEUTICS-UNT-2015-011796

PATIENT
  Age: 54 Year
  Sex: Female
  Weight: 56.69 kg

DRUGS (2)
  1. REMODULIN [Suspect]
     Active Substance: TREPROSTINIL
     Dosage: 0.022 ?G/KG/MIN,CONTINUING
     Route: 058
  2. REMODULIN [Suspect]
     Active Substance: TREPROSTINIL
     Indication: PULMONARY HYPERTENSION
     Dosage: 0.028 ?G/KG/MIN, CONTINUING
     Route: 058
     Dates: start: 20150702

REACTIONS (5)
  - Infusion site irritation [Unknown]
  - Dermatitis contact [Unknown]
  - Dyspnoea exertional [Unknown]
  - Infusion site haemorrhage [Unknown]
  - Infusion site pruritus [Unknown]

NARRATIVE: CASE EVENT DATE: 201509
